FAERS Safety Report 5571096-9 (Version None)
Quarter: 2007Q4

REPORT INFORMATION
  Report Type: 
  Country: None (occurrence: None)
  Receive Date: 20071219
  Receipt Date: 20071210
  Transmission Date: 20080405
  Serious: Yes (Other)
  Sender: FDA-Public Use
  Company Number: 017333

PATIENT
  Age: 24 Year
  Sex: Female

DRUGS (2)
  1. CLARAVIS [Suspect]
     Dosage: 40 MG, BID, ORAL; 40 MG, QD, ORAL
     Route: 048
     Dates: start: 20070313, end: 20070720
  2. CLARAVIS [Suspect]
     Dosage: 40 MG, BID, ORAL; 40 MG, QD, ORAL
     Route: 048
     Dates: start: 20070721, end: 20070805

REACTIONS (4)
  - ABORTION INDUCED [None]
  - DRUG EXPOSURE DURING PREGNANCY [None]
  - TREATMENT NONCOMPLIANCE [None]
  - UNINTENDED PREGNANCY [None]
